FAERS Safety Report 7714186-4 (Version None)
Quarter: 2011Q3

REPORT INFORMATION
  Report Type: 
  Country: None (occurrence: None)
  Receive Date: 20110829
  Receipt Date: 20110817
  Transmission Date: 20111222
  Serious: Yes (Other)
  Sender: FDA-Public Use
  Company Number: US-BIOGENIDEC-2011BI031590

PATIENT
  Age: 56 Year
  Sex: Female

DRUGS (5)
  1. AVONEX [Suspect]
     Indication: MULTIPLE SCLEROSIS
     Route: 030
     Dates: start: 19960101
  2. STEROID THERAPY [Concomitant]
     Indication: MULTIPLE SCLEROSIS
  3. AVONEX [Suspect]
     Route: 030
  4. BETASERON [Concomitant]
     Indication: MULTIPLE SCLEROSIS
  5. AVONEX [Suspect]
     Route: 030

REACTIONS (11)
  - INFLUENZA LIKE ILLNESS [None]
  - URINARY TRACT INFECTION [None]
  - GASTROINTESTINAL HAEMORRHAGE [None]
  - CONSTIPATION [None]
  - POLYP [None]
  - INCONTINENCE [None]
  - INJECTION SITE ERYTHEMA [None]
  - RETINAL TEAR [None]
  - VITREOUS FLOATERS [None]
  - URINARY RETENTION [None]
  - DIVERTICULUM INTESTINAL [None]
